FAERS Safety Report 16758894 (Version 1)
Quarter: 2019Q3

REPORT INFORMATION
  Report Type: Spontaneous
  Country: CA (occurrence: CA)
  Receive Date: 20190830
  Receipt Date: 20190830
  Transmission Date: 20191005
  Serious: Yes (Other)
  Sender: FDA-Public Use
  Company Number: CA-CELLTRION INC.-2019CA021674

PATIENT

DRUGS (11)
  1. CALCIUM [Concomitant]
     Active Substance: CALCIUM
     Dosage: UNK
     Route: 048
  2. INFLECTRA [Suspect]
     Active Substance: INFLIXIMAB-DYYB
     Dosage: 10 MG/KG (0, 2, 6 THEN 8 WEEKS)
     Route: 042
     Dates: start: 20190521
  3. INFLECTRA [Suspect]
     Active Substance: INFLIXIMAB-DYYB
     Dosage: 10 MG/KG (0, 2, 6 THEN 8 WEEKS)
     Route: 042
     Dates: start: 20190618
  4. VITAMIN D NOS [Concomitant]
     Active Substance: VITAMIN D NOS
     Dosage: UNK
     Route: 048
  5. MEZAVANT [Concomitant]
     Active Substance: MESALAMINE
     Dosage: UNK UNK, 2X/DAY
     Route: 048
  6. INFLECTRA [Suspect]
     Active Substance: INFLIXIMAB-DYYB
     Indication: COLITIS ULCERATIVE
     Dosage: 10 MG/KG (0, 2, 6 THEN 8 WEEKS)
     Route: 042
     Dates: start: 20190506
  7. INFLECTRA [Suspect]
     Active Substance: INFLIXIMAB-DYYB
     Dosage: 10 MG/KG, 0, 2, 6 THEN 8 WEEKS
     Route: 042
     Dates: start: 20190618
  8. INFLECTRA [Suspect]
     Active Substance: INFLIXIMAB-DYYB
     Dosage: 10 MG/KG, 0, 2, 6 THEN 8 WEEKS
     Route: 042
     Dates: start: 20190822
  9. PENTASA [Concomitant]
     Active Substance: MESALAMINE
     Dosage: AT BED TIME
     Route: 054
  10. VENOFER [Concomitant]
     Active Substance: IRON SUCROSE
     Dosage: UNK
     Route: 042
     Dates: start: 201811
  11. PREDNISONE. [Concomitant]
     Active Substance: PREDNISONE
     Dosage: UNK
     Dates: start: 20190408

REACTIONS (9)
  - Weight increased [Not Recovered/Not Resolved]
  - Ageusia [Recovered/Resolved]
  - Chills [Unknown]
  - Pyrexia [Recovered/Resolved]
  - Uterine leiomyoma [Unknown]
  - Influenza like illness [Recovered/Resolved]
  - Dyspnoea [Recovered/Resolved]
  - Swelling face [Recovered/Resolved]
  - Condition aggravated [Unknown]

NARRATIVE: CASE EVENT DATE: 20190618
